FAERS Safety Report 20124878 (Version 1)
Quarter: 2021Q4

REPORT INFORMATION
  Report Type: Spontaneous
  Country: US (occurrence: None)
  Receive Date: 20211126
  Receipt Date: 20211126
  Transmission Date: 20220304
  Serious: Yes (Hospitalization)
  Sender: FDA-Public Use
  Company Number: None

PATIENT
  Age: 66 Year
  Sex: Male
  Weight: 94380 kg

DRUGS (1)
  1. MORPHINE SULFATE [Suspect]
     Active Substance: MORPHINE SULFATE
     Indication: Pain
     Dosage: FREQUENCY : 4 TIMES A DAY;?
     Route: 048
     Dates: start: 20210802, end: 20210802

REACTIONS (6)
  - Anaphylactic reaction [None]
  - Cough [None]
  - Wheezing [None]
  - Urticaria [None]
  - Pruritus [None]
  - Obstructive airways disorder [None]

NARRATIVE: CASE EVENT DATE: 20210803
